FAERS Safety Report 7227459-9 (Version None)
Quarter: 2011Q1

REPORT INFORMATION
  Report Type: 
  Country: None (occurrence: None)
  Receive Date: 20110114
  Receipt Date: 20110106
  Transmission Date: 20110831
  Serious: Yes (Hospitalization, Other)
  Sender: FDA-Public Use
  Company Number: JP-AMGEN-JPNCT2010007477

PATIENT

DRUGS (12)
  1. CALCIUM LEVOFOLINATE [Concomitant]
     Indication: COLORECTAL CANCER
     Route: 041
     Dates: start: 20100811, end: 20100813
  2. FLUVASTATIN [Concomitant]
     Indication: HYPERCHOLESTEROLAEMIA
     Dosage: UNK
     Route: 048
  3. PANITUMUMAB [Suspect]
     Indication: COLORECTAL CANCER
     Dosage: 6 MG/KG, Q2WK
     Route: 041
     Dates: start: 20100811, end: 20100811
  4. OXALIPLATIN [Suspect]
     Indication: COLORECTAL CANCER
     Route: 041
     Dates: start: 20100811, end: 20100813
  5. CELECTOL [Concomitant]
     Dosage: UNK
     Route: 048
  6. FLUOROURACIL [Concomitant]
     Dosage: 700 MG, UNK
     Route: 040
     Dates: start: 20100811, end: 20100813
  7. NORVASC [Concomitant]
     Dosage: UNK
     Route: 048
  8. FLUOROURACIL [Concomitant]
     Indication: COLORECTAL CANCER
     Route: 041
     Dates: start: 20100811, end: 20100813
  9. CORTICOSTEROIDS [Concomitant]
     Indication: PROPHYLAXIS
     Dosage: UNK
     Route: 065
  10. KYTRIL [Concomitant]
     Dosage: UNK
     Route: 048
  11. GRANISETRON HCL [Concomitant]
     Dosage: UNK
     Route: 041
  12. FLUVASTATIN [Concomitant]
     Route: 048

REACTIONS (3)
  - STOMATITIS [None]
  - DYSGEUSIA [None]
  - PHARYNGITIS [None]
